FAERS Safety Report 9810661 (Version 1)
Quarter: 2014Q1

REPORT INFORMATION
  Report Type: Spontaneous
  Country: US (occurrence: US)
  Receive Date: 20140110
  Receipt Date: 20140110
  Transmission Date: 20141002
  Serious: Yes (Hospitalization)
  Sender: FDA-Public Use
  Company Number: US-SA-2013SA095223

PATIENT
  Sex: Male

DRUGS (15)
  1. PLAVIX [Suspect]
     Route: 048
  2. ASPIRIN [Suspect]
     Route: 065
  3. DOXAZOSIN [Concomitant]
  4. CRESTOR [Concomitant]
  5. FUROSEMIDE [Concomitant]
  6. LEVOTHYROXINE [Concomitant]
  7. METOPROLOL [Concomitant]
  8. TRICOR [Concomitant]
  9. HYDROCODONE [Concomitant]
  10. ACETAMINOPHEN [Concomitant]
  11. GUANFACINE [Concomitant]
  12. PROTONIX [Concomitant]
  13. ALL OTHER THERAPEUTIC PRODUCTS [Concomitant]
  14. VITAMIN D [Concomitant]
  15. TYLENOL ARTHRITIS [Concomitant]

REACTIONS (4)
  - Haemorrhage [Unknown]
  - Melaena [Unknown]
  - Gastrointestinal ulcer [Unknown]
  - Rectal haemorrhage [Unknown]
